FAERS Safety Report 13930130 (Version 1)
Quarter: 2017Q3

REPORT INFORMATION
  Report Type: Spontaneous
  Country: US (occurrence: US)
  Receive Date: 20170901
  Receipt Date: 20170901
  Transmission Date: 20171127
  Serious: Yes (Other)
  Sender: FDA-Public Use
  Company Number: US-VIFOR (INTERNATIONAL) INC.-VIT-2016-08316

PATIENT
  Age: 69 Year
  Sex: Male
  Weight: 74.46 kg

DRUGS (8)
  1. ERGOCALCIFEROL/ASCORBIC ACID/FOLIC ACID/NICOTINAMIDE/PANTHENOL/RETINOL/RIBOFLAVIN/THIAMINE HYDROCHLO [Concomitant]
  2. COLECALCIFEROL [Concomitant]
     Active Substance: CHOLECALCIFEROL
  3. VELTASSA [Suspect]
     Active Substance: PATIROMER
     Indication: HYPERKALAEMIA
     Route: 048
     Dates: start: 201603, end: 201703
  4. MAGNESIUM [Concomitant]
     Active Substance: MAGNESIUM
  5. TACROLIMUS. [Concomitant]
     Active Substance: TACROLIMUS
  6. MYCOPHENOLATE MOFETIL. [Concomitant]
     Active Substance: MYCOPHENOLATE MOFETIL
  7. KAYEXALATE [Concomitant]
     Active Substance: SODIUM POLYSTYRENE SULFONATE
  8. TOCOPHEROL [Concomitant]
     Active Substance: TOCOPHEROL

REACTIONS (6)
  - Drug ineffective [Unknown]
  - Constipation [Recovering/Resolving]
  - Cow^s milk intolerance [Recovering/Resolving]
  - Malaise [Recovering/Resolving]
  - Pneumonia [Recovering/Resolving]
  - Dyspepsia [Recovering/Resolving]

NARRATIVE: CASE EVENT DATE: 201610
